FAERS Safety Report 5118521-5 (Version None)
Quarter: 2006Q3

REPORT INFORMATION
  Report Type: 
  Country: None (occurrence: None)
  Receive Date: 20060927
  Receipt Date: 20060913
  Transmission Date: 20061208
  Serious: Yes (Other)
  Sender: FDA-Public Use
  Company Number: MC200600637

PATIENT

DRUGS (1)
  1. ANGIOMAX [Suspect]
     Dates: start: 20060908

REACTIONS (2)
  - CEREBROVASCULAR ACCIDENT [None]
  - COAGULATION TIME ABNORMAL [None]
